FAERS Safety Report 5955642-9 (Version None)
Quarter: 2008Q4

REPORT INFORMATION
  Report Type: 
  Country: None (occurrence: None)
  Receive Date: 20081117
  Receipt Date: 20081106
  Transmission Date: 20090506
  Serious: Yes (Other)
  Sender: FDA-Public Use
  Company Number: GB-PFIZER INC-2008089468

PATIENT
  Age: 64 Year
  Sex: Male
  Weight: 88 kg

DRUGS (9)
  1. CHAMPIX [Suspect]
     Indication: SMOKING CESSATION THERAPY
     Route: 048
     Dates: start: 20081003, end: 20081017
  2. LANSOPRAZOLE [Concomitant]
     Route: 048
  3. PERINDOPRIL ERBUMINE [Concomitant]
     Route: 048
  4. SYMBICORT [Concomitant]
     Route: 055
  5. ACETYLSALICYLIC ACID SRT [Concomitant]
     Route: 048
  6. ATORVASTATIN CALCIUM [Concomitant]
     Route: 048
  7. BISOPROLOL FUMARATE [Concomitant]
     Route: 048
  8. CLOPIDOGREL [Concomitant]
     Route: 048
  9. EZETIMIBE [Concomitant]
     Route: 048

REACTIONS (4)
  - CARDIAC FAILURE CONGESTIVE [None]
  - DIABETES MELLITUS [None]
  - FEELING ABNORMAL [None]
  - OEDEMA PERIPHERAL [None]
